FAERS Safety Report 9472473 (Version 1)
Quarter: 2013Q3

REPORT INFORMATION
  Report Type: Spontaneous
  Country: US (occurrence: None)
  Receive Date: 20130821
  Receipt Date: 20130821
  Transmission Date: 20140515
  Serious: Yes (Life-Threatening, Hospitalization)
  Sender: FDA-Public Use
  Company Number: None

PATIENT
  Age: 42 Year
  Sex: Male
  Weight: 117.03 kg

DRUGS (3)
  1. AUGMENTIN [Suspect]
     Indication: PHARYNGITIS STREPTOCOCCAL
     Route: 048
     Dates: start: 20130814, end: 20130816
  2. DECADRON [Concomitant]
  3. HYDRALAZINE [Concomitant]

REACTIONS (5)
  - Swelling face [None]
  - Lip swelling [None]
  - Swollen tongue [None]
  - Dyspnoea [None]
  - Stridor [None]
